FAERS Safety Report 11603646 (Version 1)
Quarter: 2015Q4

REPORT INFORMATION
  Report Type: Spontaneous
  Country: US (occurrence: US)
  Receive Date: 20151007
  Receipt Date: 20151007
  Transmission Date: 20160304
  Serious: No
  Sender: FDA-Public Use
  Company Number: US-ASTRAZENECA-2011BM06545

PATIENT
  Age: 65 Year
  Sex: Female

DRUGS (5)
  1. BYETTA [Suspect]
     Active Substance: EXENATIDE
     Indication: TYPE 2 DIABETES MELLITUS
     Route: 058
  2. BYDUREON [Suspect]
     Active Substance: EXENATIDE
     Route: 058
     Dates: start: 201509
  3. AMOXICILLIN. [Concomitant]
     Active Substance: AMOXICILLIN
     Indication: TOOTH DISORDER
     Dosage: CAPSULE, HARD
  4. CLINDAMYCIN [Concomitant]
     Active Substance: CLINDAMYCIN\CLINDAMYCIN PHOSPHATE
     Indication: TOOTH DISORDER
  5. BYETTA [Suspect]
     Active Substance: EXENATIDE
     Indication: TYPE 2 DIABETES MELLITUS
     Route: 058

REACTIONS (13)
  - Pain in jaw [Recovered/Resolved]
  - Intentional product misuse [Recovered/Resolved]
  - Tooth disorder [Recovered/Resolved]
  - Nausea [Recovered/Resolved]
  - Decreased appetite [Recovered/Resolved]
  - Injection site pruritus [Unknown]
  - Weight decreased [Recovered/Resolved]
  - Injection site nodule [Unknown]
  - Injection site erythema [Unknown]
  - Intentional device misuse [Unknown]
  - Toothache [Recovered/Resolved]
  - Vomiting [Recovered/Resolved]
  - Facial pain [Recovered/Resolved]
